FAERS Safety Report 14666469 (Version 1)
Quarter: 2018Q1

REPORT INFORMATION
  Report Type: Report from Study
  Country: US (occurrence: US)
  Receive Date: 20180321
  Receipt Date: 20180321
  Transmission Date: 20180509
  Serious: Yes (Hospitalization)
  Sender: FDA-Public Use
  Company Number: US-B.I. PHARMACEUTICALS,INC./RIDGEFIELD-2018-BI-009530

PATIENT
  Age: 64 Year
  Sex: Male
  Weight: 150 kg

DRUGS (2)
  1. BIBW 2992 [Suspect]
     Active Substance: AFATINIB
     Indication: NON-SMALL CELL LUNG CANCER
     Route: 065
     Dates: start: 20170502, end: 20180213
  2. ERBITUX [Suspect]
     Active Substance: CETUXIMAB
     Indication: NON-SMALL CELL LUNG CANCER
     Dosage: DISCONTINUED ON 03-JAN-2018 FOR PREVIOUS GR. 3 RASH NOW GR. 1.
     Route: 065
     Dates: start: 20170502, end: 20180103

REACTIONS (5)
  - Pneumonitis [Recovered/Resolved]
  - Hypoxia [Recovered/Resolved with Sequelae]
  - Lethargy [Recovered/Resolved with Sequelae]
  - Pneumonia [Unknown]
  - Dyspnoea [Recovered/Resolved with Sequelae]

NARRATIVE: CASE EVENT DATE: 20180205
